FAERS Safety Report 7812260-5 (Version None)
Quarter: 2011Q4

REPORT INFORMATION
  Report Type: 
  Country: None (occurrence: None)
  Receive Date: 20111013
  Receipt Date: 20110822
  Transmission Date: 20120403
  Serious: No
  Sender: FDA-Public Use
  Company Number: US-NOVEN-11US003033

PATIENT
  Sex: Male

DRUGS (6)
  1. FENTANYL [Suspect]
     Indication: PAIN
     Dosage: 50 UG/HR, Q72H
     Route: 062
     Dates: start: 20110701
  2. CHOLESTEROL MEDICATION [Concomitant]
     Indication: BLOOD CHOLESTEROL
  3. BRONCHODILATORS [Concomitant]
     Indication: ASTHMA
  4. LORTAB [Concomitant]
     Indication: PAIN
     Route: 048
  5. BRONCHODILATORS [Concomitant]
     Indication: EMPHYSEMA
  6. ANTIHYPERTENSIVES [Concomitant]
     Indication: HYPERTENSION

REACTIONS (2)
  - PRODUCT QUALITY ISSUE [None]
  - INADEQUATE ANALGESIA [None]
